FAERS Safety Report 8374981-8 (Version None)
Quarter: 2012Q2

REPORT INFORMATION
  Report Type: 
  Country: None (occurrence: None)
  Receive Date: 20120521
  Receipt Date: 20120518
  Transmission Date: 20120825
  Serious: Yes (Other)
  Sender: FDA-Public Use
  Company Number: ES-ABBOTT-12P-144-0936326-00

PATIENT
  Sex: Female

DRUGS (4)
  1. METRONIDAZOLE [Concomitant]
     Indication: HELICOBACTER INFECTION
     Dates: end: 20120101
  2. CIPROFLOXACIN HCL [Concomitant]
     Indication: HELICOBACTER INFECTION
     Dates: end: 20120101
  3. HUMIRA [Suspect]
     Indication: CROHN'S DISEASE
     Route: 058
     Dates: start: 20110301
  4. AZATHIOPRINE [Concomitant]
     Indication: CROHN'S DISEASE

REACTIONS (1)
  - ABORTION SPONTANEOUS [None]
